FAERS Safety Report 23461201 (Version 1)
Quarter: 2024Q1

REPORT INFORMATION
  Report Type: Other
  Country: None (occurrence: IT)
  Receive Date: 20240131
  Receipt Date: 20240131
  Transmission Date: 20240410
  Serious: No
  Sender: FDA-Public Use
  Company Number: IT-SIGA Technologies, Inc.-2152351

PATIENT
  Age: 42 Year
  Sex: Male

DRUGS (7)
  1. TPOXX [Suspect]
     Active Substance: TECOVIRIMAT
     Indication: Monkeypox
     Route: 048
  2. IBUPROFEN [Suspect]
     Active Substance: IBUPROFEN
     Route: 048
  3. COLCHICINE [Suspect]
     Active Substance: COLCHICINE
     Route: 048
  4. DOXYCYCLINE [Concomitant]
     Active Substance: DOXYCYCLINE
  5. DOPAMINE [Concomitant]
     Active Substance: DOPAMINE HYDROCHLORIDE
  6. ATROPINE [Concomitant]
     Active Substance: ATROPINE\ATROPINE SULFATE
  7. tenofovir alafenamide, emtricitabine, and rilpivirin [Concomitant]
     Dates: start: 20180101

REACTIONS (1)
  - Nausea [Recovered/Resolved]
